FAERS Safety Report 6287714-6 (Version None)
Quarter: 2009Q3

REPORT INFORMATION
  Report Type: 
  Country: None (occurrence: None)
  Receive Date: 20090727
  Receipt Date: 20090727
  Transmission Date: 20100115
  Serious: Yes (Other)
  Sender: FDA-Public Use
  Company Number: None

PATIENT
  Age: 26 Year
  Sex: Female
  Weight: 57.1532 kg

DRUGS (1)
  1. CIPROFLOXACIN HCL [Suspect]
     Indication: ESCHERICHIA URINARY TRACT INFECTION
     Dosage: 500MG, Q12, PO
     Route: 048
     Dates: start: 20081031, end: 20081113

REACTIONS (1)
  - PERIPHERAL MOTOR NEUROPATHY [None]
